FAERS Safety Report 4488582-5 (Version None)
Quarter: 2004Q4

REPORT INFORMATION
  Report Type: 
  Country: None (occurrence: None)
  Receive Date: 20041028
  Receipt Date: 20041028
  Transmission Date: 20050328
  Serious: Yes (Death)
  Sender: FDA-Public Use
  Company Number: None

PATIENT
  Age: 56 Year
  Sex: Male
  Weight: 48.9885 kg

DRUGS (11)
  1. TAXOTERE [Suspect]
     Indication: CARCINOMA
     Dosage: 49 MG
     Dates: start: 20040910
  2. TAXOTERE [Suspect]
     Indication: CARCINOMA
     Dosage: 49 MG
     Dates: start: 20040917
  3. TAXOTERE [Suspect]
     Indication: CARCINOMA
     Dosage: 49 MG
     Dates: start: 20041014
  4. CARBOPLATIN [Suspect]
     Dosage: 618 MG AUC 6
     Dates: start: 20040910
  5. CARBOPLATIN [Suspect]
     Dosage: 618 MG AUC 6
     Dates: start: 20041014
  6. IFOSFAMIDE [Suspect]
     Dosage: 1620 MG
     Dates: start: 20040910
  7. IFOSFAMIDE [Suspect]
     Dosage: 1620 MG
     Dates: start: 20040917
  8. IFOSFAMIDE [Suspect]
     Dosage: 1620 MG
     Dates: start: 20041014
  9. MESNA [Suspect]
     Dosage: 1620 MG
     Dates: start: 20040910
  10. MESNA [Suspect]
     Dosage: 1620 MG
     Dates: start: 20040917
  11. MESNA [Suspect]
     Dosage: 1620 MG
     Dates: start: 20041014

REACTIONS (4)
  - DISEASE PROGRESSION [None]
  - FAILURE TO THRIVE [None]
  - NEUTROPENIA [None]
  - TREATMENT NONCOMPLIANCE [None]
